FAERS Safety Report 6998576-3 (Version None)
Quarter: 2010Q3

REPORT INFORMATION
  Report Type: 
  Country: None (occurrence: None)
  Receive Date: 20100920
  Receipt Date: 20090826
  Transmission Date: 20110219
  Serious: No
  Sender: FDA-Public Use
  Company Number: US-ASTRAZENECA-2009SE09996

PATIENT
  Age: 9 Year
  Sex: Male
  Weight: 43.5 kg

DRUGS (5)
  1. SEROQUEL [Suspect]
     Indication: MOOD ALTERED
     Route: 048
     Dates: end: 20090825
  2. SEROQUEL [Suspect]
     Route: 048
     Dates: start: 20090825
  3. ZOLOFT [Concomitant]
  4. TRAZODONE HCL [Concomitant]
  5. VYVANSE [Concomitant]

REACTIONS (3)
  - HALLUCINATION [None]
  - MALAISE [None]
  - MOOD ALTERED [None]
